FAERS Safety Report 9266045 (Version 1)
Quarter: 2013Q2

REPORT INFORMATION
  Report Type: Spontaneous
  Country: US (occurrence: US)
  Receive Date: 20130501
  Receipt Date: 20130501
  Transmission Date: 20140414
  Serious: Yes (Hospitalization)
  Sender: FDA-Public Use
  Company Number: US-B.I. PHARMACEUTICALS,INC./RIDGEFIELD-2013-BI-11920BP

PATIENT
  Age: 74 Year
  Sex: Female
  Weight: 83 kg

DRUGS (13)
  1. PRADAXA [Suspect]
     Indication: CEREBROVASCULAR ACCIDENT PROPHYLAXIS
     Dosage: 150 MG
     Route: 048
     Dates: start: 201209
  2. PRADAXA [Suspect]
     Indication: ATRIAL FIBRILLATION
  3. MULTIVITAMIN [Concomitant]
     Indication: PROPHYLAXIS
     Route: 048
     Dates: start: 2003
  4. FUROSEMIDE [Concomitant]
     Indication: OEDEMA
     Dosage: 80 MG
     Route: 048
     Dates: start: 2011
  5. METFORMIN [Concomitant]
     Indication: DIABETES MELLITUS
     Dosage: 2000 MG
     Route: 048
     Dates: start: 2003
  6. LOVASTATIN [Concomitant]
     Indication: CARDIAC DISORDER
     Dosage: 60 MG
     Route: 048
     Dates: start: 2011
  7. METOPROLOL [Concomitant]
     Indication: HYPERTENSION
     Dosage: 25 MG
     Route: 048
     Dates: start: 2013
  8. ISOBID [Concomitant]
     Indication: HYPERTENSION
     Dosage: 30 MG
     Route: 048
     Dates: start: 2013
  9. POTASSIUM [Concomitant]
     Indication: BLOOD POTASSIUM DECREASED
     Dosage: 20 MEQ
     Route: 048
     Dates: start: 2011
  10. GLYPIZIDE [Concomitant]
     Indication: DIABETES MELLITUS
     Dosage: 5 MG
     Route: 048
     Dates: start: 2013
  11. TYLENOL EXTRA STRENGTH [Concomitant]
     Indication: ARTHRITIS
     Route: 048
     Dates: start: 2003
  12. AMLODIPINE [Concomitant]
     Indication: HYPERTENSION
     Dosage: 10 MG
     Route: 048
     Dates: start: 2013
  13. CELEXA [Concomitant]
     Indication: ANXIETY
     Dosage: 20 MG
     Route: 048
     Dates: start: 2001

REACTIONS (4)
  - Hip fracture [Recovered/Resolved]
  - Cardiac failure congestive [Recovered/Resolved]
  - Anaemia [Recovered/Resolved]
  - Fall [Recovered/Resolved]
